FAERS Safety Report 20479691 (Version 1)
Quarter: 2022Q1

REPORT INFORMATION
  Report Type: Spontaneous
  Country: CH (occurrence: CH)
  Receive Date: 20220216
  Receipt Date: 20220216
  Transmission Date: 20220424
  Serious: Yes (Death)
  Sender: FDA-Public Use
  Company Number: CH-PFIZER INC-202200236224

PATIENT
  Age: 82 Year
  Sex: Male

DRUGS (1)
  1. VYNDAQEL [Suspect]
     Active Substance: TAFAMIDIS MEGLUMINE
     Dosage: 61 MG

REACTIONS (1)
  - Death [Fatal]
